FAERS Safety Report 21674834 (Version 2)
Quarter: 2023Q1

REPORT INFORMATION
  Report Type: Spontaneous
  Country: US (occurrence: US)
  Receive Date: 20221202
  Receipt Date: 20230306
  Transmission Date: 20230418
  Serious: No
  Sender: FDA-Public Use
  Company Number: US-SA-SAC20221201000118

PATIENT
  Sex: Female

DRUGS (1)
  1. DUPIXENT [Suspect]
     Active Substance: DUPILUMAB
     Dosage: 300 MG OTHER
     Route: 058

REACTIONS (4)
  - Eczema eyelids [Recovering/Resolving]
  - Arthralgia [Recovered/Resolved]
  - Therapeutic response decreased [Unknown]
  - Intentional product misuse [Unknown]
